FAERS Safety Report 12741961 (Version 3)
Quarter: 2016Q4

REPORT INFORMATION
  Report Type: Spontaneous
  Country: US (occurrence: US)
  Receive Date: 20160914
  Receipt Date: 20161130
  Transmission Date: 20170207
  Serious: Yes (Hospitalization, Other)
  Sender: FDA-Public Use
  Company Number: US-VERTEX PHARMACEUTICALS-2016-005284

PATIENT
  Age: 37 Year
  Sex: Male
  Weight: 58 kg

DRUGS (18)
  1. ORKAMBI [Suspect]
     Active Substance: IVACAFTOR\LUMACAFTOR
     Indication: CYSTIC FIBROSIS
     Dosage: TWO TABLETS, BID
     Route: 048
     Dates: start: 20150730, end: 20160715
  2. AQUADEKS [Concomitant]
     Active Substance: MINERALS\VITAMINS
     Indication: CYSTIC FIBROSIS
  3. VITAMIN B12 [Concomitant]
     Active Substance: CYANOCOBALAMIN
  4. URSODIOL. [Concomitant]
     Active Substance: URSODIOL
     Dosage: 500 MG, BID
  5. ORKAMBI [Suspect]
     Active Substance: IVACAFTOR\LUMACAFTOR
     Dosage: 2 TABS IN AM AND 1 TAB IN PM
     Route: 048
     Dates: start: 2016
  6. ZENPEP [Concomitant]
     Active Substance: PANCRELIPASE AMYLASE\PANCRELIPASE LIPASE\PANCRELIPASE PROTEASE
     Indication: CYSTIC FIBROSIS
     Dosage: UNK
  7. XOPENEX [Concomitant]
     Active Substance: LEVALBUTEROL HYDROCHLORIDE
     Indication: CYSTIC FIBROSIS
  8. CAYSTON [Concomitant]
     Active Substance: AZTREONAM
     Indication: CYSTIC FIBROSIS
  9. MAGNESIUM [Concomitant]
     Active Substance: MAGNESIUM
  10. COLACE [Concomitant]
     Active Substance: DOCUSATE SODIUM
  11. IRON [Concomitant]
     Active Substance: IRON
  12. PULMOZYME [Concomitant]
     Active Substance: DORNASE ALFA
     Indication: CYSTIC FIBROSIS
  13. CARVEDILOL. [Concomitant]
     Active Substance: CARVEDILOL
     Dosage: UNK
     Dates: start: 201607
  14. ACIDOPHILUS [Concomitant]
     Active Substance: LACTOBACILLUS ACIDOPHILUS
  15. PROTONIX [Concomitant]
     Active Substance: PANTOPRAZOLE SODIUM
  16. VITAMIN D [Concomitant]
     Active Substance: CHOLECALCIFEROL
     Dosage: 50000 IU, DAILY
  17. ADVAIR HFA [Concomitant]
     Active Substance: FLUTICASONE PROPIONATE\SALMETEROL XINAFOATE
     Indication: CYSTIC FIBROSIS
  18. CALCIUM [Concomitant]
     Active Substance: CALCIUM
     Indication: OSTEOPENIA

REACTIONS (2)
  - Gastrointestinal haemorrhage [Recovered/Resolved]
  - Nodular regenerative hyperplasia [Recovering/Resolving]

NARRATIVE: CASE EVENT DATE: 201607
